FAERS Safety Report 7647205-4 (Version None)
Quarter: 2011Q3

REPORT INFORMATION
  Report Type: 
  Country: None (occurrence: None)
  Receive Date: 20110801
  Receipt Date: 20110714
  Transmission Date: 20111222
  Serious: No
  Sender: FDA-Public Use
  Company Number: US-B.I. PHARMACEUTICALS,INC./RIDGEFIELD-2011-BP-16033BP

PATIENT
  Sex: Male

DRUGS (3)
  1. PROAIR HFA [Concomitant]
  2. ZANTAC 150 [Suspect]
     Indication: GASTROOESOPHAGEAL REFLUX DISEASE
     Dosage: 150 MG
     Route: 048
     Dates: start: 20110621, end: 20110621
  3. ADVAIR DISKUS 100/50 [Concomitant]

REACTIONS (2)
  - OROPHARYNGEAL PAIN [None]
  - FOREIGN BODY [None]
